FAERS Safety Report 8769109 (Version 1)
Quarter: 2012Q4

REPORT INFORMATION
  Report Type: 
  Country: US (occurrence: US)
  Receive Date: 20120904
  Receipt Date: 20120904
  Transmission Date: 20130627
  Serious: Yes (Hospitalization)
  Sender: FDA-Public Use
  Company Number: US-AMGEN-USASP2012051665

PATIENT
  Age: 54 Year
  Sex: Female

DRUGS (1)
  1. ENBREL [Suspect]
     Indication: RHEUMATOID ARTHRITIS
     Dosage: 25 mg, 2 times/wk
     Dates: start: 19990901

REACTIONS (6)
  - Pneumonia [Recovered/Resolved]
  - Localised infection [Not Recovered/Not Resolved]
  - Skin mass [Not Recovered/Not Resolved]
  - Wound [Not Recovered/Not Resolved]
  - Ulcer [Not Recovered/Not Resolved]
  - Skin infection [Not Recovered/Not Resolved]
